FAERS Safety Report 14761903 (Version 1)
Quarter: 2018Q2

REPORT INFORMATION
  Report Type: Spontaneous
  Country: HU (occurrence: HU)
  Receive Date: 20180416
  Receipt Date: 20180416
  Transmission Date: 20180711
  Serious: Yes (Other)
  Sender: FDA-Public Use
  Company Number: HU-TEVA-2018-HU-881388

PATIENT
  Age: 53 Year
  Sex: Female

DRUGS (6)
  1. FOLINIC ACID [Suspect]
     Active Substance: LEUCOVORIN
     Indication: COLON CANCER
     Dosage: PLANNED DOSE: 300MG
     Route: 040
     Dates: start: 20171215, end: 20171215
  2. BENFOGAMMA [Concomitant]
     Indication: NEUROPATHY PERIPHERAL
     Route: 048
  3. VITAMIN D3 3000 NE BIOEXTRA [Concomitant]
     Indication: VITAMIN SUPPLEMENTATION
  4. SOLU-MEDROL [Concomitant]
     Active Substance: METHYLPREDNISOLONE SODIUM SUCCINATE
     Indication: PREMEDICATION
     Route: 040
  5. VITAMIN D3 3000 NE BIOEXTRA [Concomitant]
     Indication: PROPHYLAXIS
     Dosage: 3000 IU (INTERNATIONAL UNIT) DAILY;
     Route: 048
  6. ONDANSETRON KABI [Concomitant]
     Active Substance: ONDANSETRON
     Indication: PREMEDICATION
     Route: 040

REACTIONS (3)
  - Hyperhidrosis [Recovered/Resolved]
  - Feeling cold [Recovered/Resolved]
  - Dyspnoea [Recovered/Resolved]

NARRATIVE: CASE EVENT DATE: 20171215
